FAERS Safety Report 8568735 (Version 3)
Quarter: 2012Q4

REPORT INFORMATION
  Report Type: Report from Study
  Country: JP (occurrence: JP)
  Receive Date: 20120518
  Receipt Date: 20120920
  Transmission Date: 20130627
  Serious: Yes (Death)
  Sender: FDA-Public Use
  Company Number: PHHY2012JP041970

PATIENT
  Age: 79 Year
  Sex: Female
  Weight: 47 kg

DRUGS (36)
  1. ICL670A [Suspect]
     Indication: APLASTIC ANAEMIA
     Dosage: 1000 mg, UNK
     Route: 048
     Dates: start: 20080807, end: 20080820
  2. ICL670A [Suspect]
     Dosage: 500 mg, UNK
     Route: 048
     Dates: start: 20080821, end: 20081001
  3. ICL670A [Suspect]
     Dosage: 1000 mg, UNK
     Route: 048
     Dates: start: 20081002, end: 20100503
  4. NEORAL [Suspect]
     Indication: APLASTIC ANAEMIA
     Dosage: 100 mg, UNK
     Route: 048
     Dates: start: 200306, end: 20081105
  5. NEORAL [Suspect]
     Dosage: 75 mg, UNK
     Route: 048
     Dates: start: 20081106, end: 20081217
  6. NEORAL [Suspect]
     Dosage: 100 mg, UNK
     Route: 048
     Dates: start: 20081218, end: 20090512
  7. NEORAL [Suspect]
     Dosage: 150 mg, UNK
     Route: 048
     Dates: start: 20090513, end: 20090609
  8. NEORAL [Suspect]
     Dosage: 125 mg, UNK
     Route: 048
     Dates: start: 20090610, end: 20090826
  9. DESFERAL [Concomitant]
     Indication: IRON OVERLOAD
     Dosage: 500 mg, UNK
     Route: 030
     Dates: start: 200507, end: 20080702
  10. NORVASC [Concomitant]
     Dosage: 2.5 mg, UNK
     Route: 048
     Dates: start: 20051202, end: 20080826
  11. LIPITOR [Concomitant]
     Dosage: 5 mg, UNK
     Route: 048
     Dates: start: 20080124, end: 20100503
  12. AMLODIPINE [Concomitant]
     Dosage: 2.5 mg, UNK
     Route: 048
     Dates: start: 20080903, end: 20100520
  13. ADONA [Concomitant]
     Indication: HAEMOSTASIS
     Dosage: 20 ml, UNK
     Dates: start: 20090818, end: 20090819
  14. TRANSAMIN [Concomitant]
     Indication: HAEMOSTASIS
     Dosage: 20 ml, UNK
     Dates: start: 20090818, end: 20090819
  15. SULBACTAM SODIUM [Concomitant]
     Indication: SUTURE REMOVAL
     Dosage: UNK
     Dates: start: 20090818, end: 20090820
  16. AMPICILLIN [Concomitant]
     Indication: SUTURE REMOVAL
     Dosage: UNK
     Dates: start: 20090818, end: 20090820
  17. GLAKAY [Concomitant]
     Indication: APLASTIC ANAEMIA
     Dosage: 45 mg, UNK
     Route: 048
     Dates: start: 20090902, end: 20100503
  18. ONEALFA [Concomitant]
     Indication: APLASTIC ANAEMIA
     Dosage: 0.5 ug, UNK
     Route: 048
     Dates: start: 20090916, end: 20100503
  19. LANSOPRAZOLE [Concomitant]
     Indication: PROPHYLAXIS AGAINST GASTROINTESTINAL ULCER
     Dosage: 30 mg, UNK
     Route: 048
     Dates: start: 20091105, end: 20100520
  20. MUCOSTA [Concomitant]
     Indication: PROPHYLAXIS AGAINST GASTROINTESTINAL ULCER
     Dosage: 300 mg, UNK
     Route: 048
     Dates: start: 20091105, end: 20091118
  21. CRAVIT [Concomitant]
     Indication: PROPHYLAXIS
     Dosage: 500 mg, UNK
     Route: 048
     Dates: start: 20100106, end: 20100110
  22. NEUTROGIN [Concomitant]
     Indication: NEUTROPENIA
     Dosage: 100 ug, UNK
     Dates: start: 20100106, end: 20100503
  23. MAXIPIME [Concomitant]
     Indication: PYREXIA
     Dosage: 4 g, UNK
     Dates: start: 20100427, end: 20100503
  24. TRANEXAMIC ACID [Concomitant]
     Indication: EPISTAXIS
     Dosage: 750 mg, UNK
     Route: 048
     Dates: start: 20100224, end: 20100226
  25. BLOOD CELLS, PACKED HUMAN [Concomitant]
     Dosage: 2 units
     Dates: start: 20080903, end: 20080930
  26. BLOOD CELLS, PACKED HUMAN [Concomitant]
     Dosage: 2 units
     Dates: start: 20081015, end: 20081031
  27. BLOOD CELLS, PACKED HUMAN [Concomitant]
     Dosage: 2 units
     Dates: start: 20081119, end: 20081130
  28. BLOOD CELLS, PACKED HUMAN [Concomitant]
     Dosage: 2 units
     Dates: start: 20081217, end: 20081231
  29. BLOOD CELLS, PACKED HUMAN [Concomitant]
     Dosage: 2 units
     Dates: start: 20090107, end: 20090131
  30. BLOOD CELLS, PACKED HUMAN [Concomitant]
     Dosage: 2 units
     Dates: start: 20090218, end: 20090228
  31. BLOOD CELLS, PACKED HUMAN [Concomitant]
     Dosage: 2 units
     Dates: start: 20090311, end: 20090331
  32. BLOOD CELLS, PACKED HUMAN [Concomitant]
     Dosage: 2 units
     Dates: start: 20090401, end: 20090430
  33. BLOOD CELLS, PACKED HUMAN [Concomitant]
     Dosage: 2 units
     Dates: start: 20090513, end: 20090531
  34. BLOOD CELLS, PACKED HUMAN [Concomitant]
     Dosage: 2 units
     Dates: start: 20090610, end: 20090630
  35. BLOOD CELLS, PACKED HUMAN [Concomitant]
     Dosage: 2 units
     Dates: start: 20090708, end: 20090731
  36. BLOOD CELLS, PACKED HUMAN [Concomitant]
     Dosage: 2 units
     Dates: start: 20090805

REACTIONS (4)
  - Cerebral haemorrhage [Fatal]
  - Disease progression [Fatal]
  - Renal impairment [Not Recovered/Not Resolved]
  - Nausea [Recovered/Resolved]
